FAERS Safety Report 25676885 (Version 1)
Quarter: 2025Q3

REPORT INFORMATION
  Report Type: Spontaneous
  Country: US (occurrence: US)
  Receive Date: 20250813
  Receipt Date: 20250813
  Transmission Date: 20251020
  Serious: No
  Sender: JOURNEY MEDICAL CORPORATION
  Company Number: US-JOURNEY MEDICAL CORPORATION-2024JNY00203

PATIENT
  Sex: Male

DRUGS (15)
  1. QBREXZA [Suspect]
     Active Substance: GLYCOPYRRONIUM TOSYLATE
     Indication: Hyperhidrosis
     Dosage: 1 WIPE APPLIED TOPICALLY TO BOTH UNDERARMS ONCE DAILY
     Route: 061
     Dates: start: 202408
  2. CLARITIN [Concomitant]
     Active Substance: LORATADINE
  3. FLONASE ALLERGY RELIEF [Concomitant]
     Active Substance: FLUTICASONE PROPIONATE
  4. GLYCOPYRROLATE [Concomitant]
     Active Substance: GLYCOPYRROLATE
  5. DICYCLOMINE [Concomitant]
     Active Substance: DICYCLOMINE HYDROCHLORIDE
     Dosage: 10 MG, TWICE DAILY
  6. COLESTIPOL [Concomitant]
     Active Substance: COLESTIPOL
  7. MEMANTINE [Concomitant]
     Active Substance: MEMANTINE
     Dosage: 10 MG TWICE DAILY
  8. LEXAPRO [Concomitant]
     Active Substance: ESCITALOPRAM OXALATE
     Dosage: 20 MG ONCE DAILY
  9. CLONIDINE [Concomitant]
     Active Substance: CLONIDINE
     Dosage: 0.1 MG,  TWICE DAILY
  10. ADDERALL [Concomitant]
     Active Substance: AMPHETAMINE ASPARTATE\AMPHETAMINE SULFATE\DEXTROAMPHETAMINE SACCHARATE\DEXTROAMPHETAMINE SULFATE
  11. NAC N ACETYL L CYSTEINE [Concomitant]
     Dosage: 600 MG TWICE DAILY
  12. ZEPBOUND [Concomitant]
     Active Substance: TIRZEPATIDE
     Dosage: 15 MG, 1X/WEEK
  13. XANAX [Concomitant]
     Active Substance: ALPRAZOLAM
  14. CLONAZEPAM [Concomitant]
     Active Substance: CLONAZEPAM
  15. HYDROXYZINE HYDROCHLORIDE [Concomitant]
     Active Substance: HYDROXYZINE HYDROCHLORIDE

REACTIONS (3)
  - Accidental exposure to product [Unknown]
  - Mydriasis [Not Recovered/Not Resolved]
  - Anisocoria [Not Recovered/Not Resolved]

NARRATIVE: CASE EVENT DATE: 20240101
